FAERS Safety Report 22898070 (Version 4)
Quarter: 2023Q4

REPORT INFORMATION
  Report Type: Spontaneous
  Country: US (occurrence: US)
  Receive Date: 20230903
  Receipt Date: 20231007
  Transmission Date: 20240109
  Serious: Yes (Hospitalization)
  Sender: FDA-Public Use
  Company Number: US-Accord-375434

PATIENT
  Age: 70 Year
  Sex: Male
  Weight: 114.2 kg

DRUGS (21)
  1. ETOPOSIDE [Suspect]
     Active Substance: ETOPOSIDE
     Indication: Small cell lung cancer
     Dosage: Q3W, FROM DAY 1 TO DAY 3 OF EACH CYCLE
     Route: 042
     Dates: start: 20230801
  2. CARBOPLATIN [Suspect]
     Active Substance: CARBOPLATIN
     Indication: Small cell lung cancer
     Dosage: Q3W
     Route: 042
     Dates: start: 20230801
  3. ATEZOLIZUMAB [Suspect]
     Active Substance: ATEZOLIZUMAB
     Indication: Small cell lung cancer
     Dosage: STRENGTH: 10 MILLIGRAM PER MILLILITRE?1200 MILLIGRAM, Q3W
     Route: 042
     Dates: start: 20230801
  4. BUSPIRONE [Concomitant]
     Active Substance: BUSPIRONE HYDROCHLORIDE
     Dosage: ONCE EVERY DAY
     Route: 048
     Dates: start: 2021
  5. TAMSULOSIN [Concomitant]
     Active Substance: TAMSULOSIN
     Route: 048
     Dates: start: 202101
  6. CARVEDILOL [Concomitant]
     Active Substance: CARVEDILOL
     Indication: Prophylaxis
     Route: 048
     Dates: start: 202110
  7. CARBIDOPA\LEVODOPA [Concomitant]
     Active Substance: CARBIDOPA\LEVODOPA
     Indication: Parkinson^s disease
     Dosage: 25-100MG?THREE TIMES A DAY
     Route: 048
     Dates: start: 202201
  8. ESCITALOPRAM OXALATE [Concomitant]
     Active Substance: ESCITALOPRAM OXALATE
     Route: 048
     Dates: start: 202208
  9. PREGABALIN [Concomitant]
     Active Substance: PREGABALIN
     Dates: start: 202208
  10. ALPRAZOLAM [Concomitant]
     Active Substance: ALPRAZOLAM
     Route: 048
     Dates: start: 202301
  11. KEPPRA [Concomitant]
     Active Substance: LEVETIRACETAM
     Dosage: TWO TIMES A DAY
     Route: 048
     Dates: start: 20230805
  12. VITAMINS [Concomitant]
     Active Substance: VITAMINS
     Indication: Supplementation therapy
     Dosage: 1 PILL
     Route: 048
     Dates: start: 2006
  13. ASPIRIN [Concomitant]
     Active Substance: ASPIRIN
     Route: 048
     Dates: start: 2013
  14. METAMUCIL [Concomitant]
     Active Substance: PLANTAGO SEED
     Route: 048
     Dates: start: 2013
  15. XARELTO [Concomitant]
     Active Substance: RIVAROXABAN
     Indication: Embolism
     Route: 048
     Dates: start: 2013
  16. SYMBICORT [Concomitant]
     Active Substance: BUDESONIDE\FORMOTEROL FUMARATE DIHYDRATE
     Dosage: 160-4.5MCG/ACTUATION
     Route: 048
     Dates: start: 2013
  17. OXYBUTYNIN CHLORIDE [Concomitant]
     Active Substance: OXYBUTYNIN CHLORIDE
     Indication: Pollakiuria
     Route: 048
     Dates: start: 201801
  18. PANTOPRAZOLE [Concomitant]
     Active Substance: PANTOPRAZOLE
     Indication: Gastrooesophageal reflux disease
     Route: 048
     Dates: start: 202006
  19. VITAMIN K [Concomitant]
     Active Substance: PHYTONADIONE
     Dosage: LIQUID?ONE TIME ADMIN
     Route: 030
     Dates: start: 20230726, end: 20230726
  20. FUROSEMIDE [Concomitant]
     Active Substance: FUROSEMIDE
     Dates: start: 2015
  21. CYCLOBENZAPRINE [Concomitant]
     Active Substance: CYCLOBENZAPRINE
     Dates: start: 2017

REACTIONS (2)
  - Seizure [Recovered/Resolved]
  - Pneumonia [Recovered/Resolved]

NARRATIVE: CASE EVENT DATE: 20230804
